FAERS Safety Report 12898351 (Version 3)
Quarter: 2017Q1

REPORT INFORMATION
  Report Type: Spontaneous
  Country: IT (occurrence: IT)
  Receive Date: 20161031
  Receipt Date: 20170203
  Transmission Date: 20170428
  Serious: Yes (Other)
  Sender: FDA-Public Use
  Company Number: IT-ALLERGAN-1674194US

PATIENT
  Age: 76 Year
  Sex: Female

DRUGS (9)
  1. LEVOXACIN 500MG COMPRESSE RIVESTITE CON FILM/ LEVOFLOXACIN [Concomitant]
     Indication: HELICOBACTER GASTRITIS
     Dosage: 1 DF, QPM
     Route: 048
  2. AMOXICILLIN. [Concomitant]
     Active Substance: AMOXICILLIN
     Indication: HELICOBACTER GASTRITIS
     Dosage: 1 DF, BID
     Route: 048
  3. CITALOPRAM HYDROBROMIDE - BP [Suspect]
     Active Substance: CITALOPRAM HYDROBROMIDE
     Indication: PRODUCT USED FOR UNKNOWN INDICATION
     Dosage: 1 DF, QD
     Route: 048
  4. ATENOLOL. [Concomitant]
     Active Substance: ATENOLOL
     Indication: HYPERTENSION
     Dosage: 50 MG, QAM
     Route: 048
  5. FOLIC ACID. [Concomitant]
     Active Substance: FOLIC ACID
     Indication: PRODUCT USED FOR UNKNOWN INDICATION
     Dosage: 1 DF, QD
     Route: 048
  6. KADIUR 50MG+5MG COMPRESSE RIVESTITE CON FILM/ 50MG POTASSIUM CANRENOAT [Suspect]
     Active Substance: BUTHIAZIDE\CANRENOATE POTASSIUM
     Indication: PRODUCT USED FOR UNKNOWN INDICATION
     Dosage: 1 DF, QD
     Route: 048
  7. PANTORC 20MG COMPRESSE GASTRORESISTENTI/ PANTOPRAZOLE [Concomitant]
     Indication: HELICOBACTER GASTRITIS
     Dosage: 1 DF, QD
     Route: 048
  8. LEVOBREN 25MG/ML GOCCE ORALI, SOLUZIONE/ LEVOSULPIRIDE [Suspect]
     Active Substance: LEVOSULPIRIDE
     Indication: PRODUCT USED FOR UNKNOWN INDICATION
     Dosage: 20 GTT, BID
     Route: 048
  9. VALSARTAN. [Concomitant]
     Active Substance: VALSARTAN
     Indication: HYPERTENSION
     Dosage: 3 MG, QPM
     Route: 048

REACTIONS (3)
  - Hyponatraemia [Recovered/Resolved]
  - Asthenia [Recovered/Resolved]
  - Electrolyte imbalance [Recovered/Resolved]

NARRATIVE: CASE EVENT DATE: 20160401
